FAERS Safety Report 5654109-5 (Version None)
Quarter: 2008Q1

REPORT INFORMATION
  Report Type: 
  Country: None (occurrence: None)
  Receive Date: 20080306
  Receipt Date: 20080227
  Transmission Date: 20080703
  Serious: Yes (Other)
  Sender: FDA-Public Use
  Company Number: JP-PFIZER INC-2008018770

PATIENT
  Age: 16 Year
  Sex: Male

DRUGS (6)
  1. GENOTROPIN [Suspect]
     Dosage: DAILY DOSE:1.4MG
     Route: 058
  2. KREMEZIN [Concomitant]
     Route: 048
  3. SODIUM BICARBONATE [Concomitant]
  4. CALTAN [Concomitant]
     Route: 048
  5. FERROUS FUMARATE [Concomitant]
     Route: 048
  6. ALFAROL [Concomitant]
     Route: 048

REACTIONS (1)
  - HALLUCINATION [None]
